FAERS Safety Report 4893241-0 (Version None)
Quarter: 2006Q1

REPORT INFORMATION
  Report Type: 
  Country: None (occurrence: None)
  Receive Date: 20060124
  Receipt Date: 20060117
  Transmission Date: 20060701
  Serious: Yes (Death)
  Sender: FDA-Public Use
  Company Number: 2006-US-00400

PATIENT
  Age: 80 Year
  Sex: Female

DRUGS (1)
  1. CLOZAPINE [Suspect]
     Indication: PSYCHOTIC DISORDER
     Dosage: 50 MG , QD, ORAL
     Route: 048
     Dates: start: 20010301, end: 20050901

REACTIONS (1)
  - CARDIAC FAILURE CONGESTIVE [None]
